FAERS Safety Report 10557779 (Version 1)
Quarter: 2014Q4

REPORT INFORMATION
  Report Type: Spontaneous
  Country: IT (occurrence: None)
  Receive Date: 20141029
  Receipt Date: 20141029
  Transmission Date: 20150529
  Serious: Yes (Hospitalization)
  Sender: FDA-Public Use
  Company Number: IT2014GSK006497

PATIENT
  Age: 86 Year
  Sex: Female

DRUGS (9)
  1. EUTIROX (LEVOTHYROXINE SODIUM) TABLET [Concomitant]
  2. SINEMET TABLET [Concomitant]
  3. LANSOX (LANSOPRAZOLE) TABLET [Concomitant]
  4. ALLOPURINOL (ALLOPURINOL) [Concomitant]
     Active Substance: ALLOPURINOL
  5. SEREUPIN (PAROXETINE HYDROCHLORIDE) TABLET [Suspect]
     Active Substance: PAROXETINE HYDROCHLORIDE
     Indication: DEPRESSION
     Route: 048
     Dates: start: 20140701, end: 20140902
  6. GABAPENTIN (GABAPENTIN) [Concomitant]
     Active Substance: GABAPENTIN
  7. CARDIOASPIRIN (ACETYLSALICYLIC ACID) TABLET [Concomitant]
  8. ZYPREXA [Concomitant]
     Active Substance: OLANZAPINE
  9. NEO-LOTAN PLUS TABLET [Concomitant]

REACTIONS (3)
  - Constipation [None]
  - Urinary retention [None]
  - Hyponatraemia [None]

NARRATIVE: CASE EVENT DATE: 20140902
